FAERS Safety Report 24846310 (Version 3)
Quarter: 2025Q2

REPORT INFORMATION
  Report Type: Other
  Country: US (occurrence: US)
  Receive Date: 20250115
  Receipt Date: 20250428
  Transmission Date: 20250716
  Serious: No
  Sender: TRAVERE THERAPEUTICS
  Company Number: US-TRAVERE-2024TVT01280

PATIENT
  Age: 29 Year
  Sex: Female

DRUGS (1)
  1. FILSPARI [Suspect]
     Active Substance: SPARSENTAN
     Indication: IgA nephropathy
     Dosage: LOT NUMBER: 1976070, EXPIRY DATE: 31-AUG-2025
     Route: 048
     Dates: start: 202411

REACTIONS (9)
  - Respiratory tract infection [Unknown]
  - Pruritus [Unknown]
  - Fatigue [Unknown]
  - Cough [Unknown]
  - Vomiting [Unknown]
  - Haematuria [None]
  - Blepharospasm [Unknown]
  - Headache [None]
  - Neck pain [Unknown]

NARRATIVE: CASE EVENT DATE: 20241210
